FAERS Safety Report 5241694-0 (Version None)
Quarter: 2007Q1

REPORT INFORMATION
  Report Type: 
  Country: None (occurrence: None)
  Receive Date: 20070220
  Receipt Date: 20070208
  Transmission Date: 20070707
  Serious: Yes (Hospitalization)
  Sender: FDA-Public Use
  Company Number: AU-ROCHE-481995

PATIENT
  Age: 47 Year
  Sex: Male
  Weight: 112.1 kg

DRUGS (10)
  1. PEG-INTERFERON ALFA 2A (RO 25-8310) [Suspect]
     Route: 058
     Dates: start: 20060427
  2. RIBAVIRIN [Suspect]
     Route: 048
     Dates: start: 20060427
  3. RANITIDINE [Concomitant]
     Dates: start: 20010702
  4. NIFEDIPINE [Concomitant]
     Dates: start: 20010702
  5. DOXEPIN HCL [Concomitant]
     Dates: start: 20030101
  6. GEMFIBROZIL [Concomitant]
     Dates: start: 20040415
  7. TRAMADOL HCL [Concomitant]
     Dates: start: 20050713
  8. TACROLIMUS [Concomitant]
     Dates: start: 20000216
  9. PERINDOPRIL ERBUMINE [Concomitant]
     Dates: start: 20070118
  10. ONDANSETRON [Concomitant]
     Dates: start: 20070119

REACTIONS (1)
  - NECK MASS [None]
